FAERS Safety Report 11319610 (Version 1)
Quarter: 2015Q3

REPORT INFORMATION
  Report Type: Spontaneous
  Country: US (occurrence: None)
  Receive Date: 20150728
  Receipt Date: 20150728
  Transmission Date: 20151125
  Serious: Yes (Disabling)
  Sender: FDA-Public Use
  Company Number: None

PATIENT
  Age: 70 Year
  Sex: Male
  Weight: 77.11 kg

DRUGS (18)
  1. VITAMIN E [Concomitant]
     Active Substance: .ALPHA.-TOCOPHEROL
  2. DEEP BLUE [Concomitant]
  3. VITAMIN B COMPLEX [Concomitant]
     Active Substance: CYANOCOBALAMIN\DEXPANTHENOL\NIACINAMIDE\PYRIDOXINE HYDROCHLORIDE\RIBOFLAVIN 5^-PHOSPHATE SODIUM\THIAMINE HYDROCHLORIDE\VITAMIN B COMPLEX
  4. ECHINACEA [Concomitant]
     Active Substance: ECHINACEA, UNSPECIFIED
  5. HOMEOPATHIC INFECTION FIGHTER [Concomitant]
  6. CHONDROITON [Concomitant]
  7. DOXYCYCLINE HYCLATE. [Suspect]
     Active Substance: DOXYCYCLINE HYCLATE
     Indication: TOOTH EXTRACTION
     Dosage: 1 CAPSULE BY MOUTH EVERY 12HO  TWICE DAILY  TAKEN BY MOUTH
     Route: 048
     Dates: start: 20150706, end: 20150716
  8. IBUPROFEN. [Concomitant]
     Active Substance: IBUPROFEN
  9. VITAMIN C [Concomitant]
     Active Substance: ASCORBIC ACID
  10. GLUCOSAMINE [Concomitant]
     Active Substance: GLUCOSAMINE
  11. MAGNESIUM [Concomitant]
     Active Substance: MAGNESIUM
  12. CALCIUM [Concomitant]
     Active Substance: CALCIUM
  13. VITAMIN  A [Concomitant]
     Active Substance: VITAMIN A
  14. VITAMIN D [Concomitant]
     Active Substance: CHOLECALCIFEROL
  15. FLESH AND CARTILAGE GROWTH SIMULANT [Concomitant]
  16. NERVE FIX [Concomitant]
  17. BORON [Concomitant]
     Active Substance: BORON
  18. BONE [Concomitant]

REACTIONS (3)
  - Drug ineffective [None]
  - Insomnia [None]
  - Arthralgia [None]

NARRATIVE: CASE EVENT DATE: 20150712
